FAERS Safety Report 6300537-4 (Version None)
Quarter: 2009Q3

REPORT INFORMATION
  Report Type: 
  Country: None (occurrence: None)
  Receive Date: 20090806
  Receipt Date: 20090318
  Transmission Date: 20100115
  Serious: No
  Sender: FDA-Public Use
  Company Number: US-ABBOTT-09P-163-0563880-00

PATIENT
  Age: 60 Year
  Sex: Female

DRUGS (2)
  1. DEPAKOTE ER [Suspect]
     Indication: DEPRESSED MOOD
     Dosage: UNKNOWN
  2. DEPAKOTE ER [Suspect]
     Indication: CONVULSION

REACTIONS (1)
  - ALOPECIA [None]
